FAERS Safety Report 5782240-2 (Version None)
Quarter: 2008Q2

REPORT INFORMATION
  Report Type: 
  Country: None (occurrence: None)
  Receive Date: 20080618
  Receipt Date: 20080605
  Transmission Date: 20081010
  Serious: Yes (Hospitalization)
  Sender: FDA-Public Use
  Company Number: DSU-2008-00833

PATIENT
  Age: 65 Year
  Sex: Female
  Weight: 70 kg

DRUGS (3)
  1. OLMESARTAN MEDOXOMIL [Suspect]
     Indication: HYPERTENSION
     Dosage: (40 MG), PER ORAL
     Route: 048
     Dates: start: 20080605
  2. OLMETEC HCT(HYDROCHLOROTHIAZIDE, OLMESARTAN MEDOXOMIL)(TABLET)(HYDROCH [Concomitant]
  3. ATENSINA(CLONIDINE HYDROCHLORIDE)(CLONIDINE HYDROCHLORIDE) [Concomitant]

REACTIONS (2)
  - CARDIAC FAILURE [None]
  - TREMOR [None]
